FAERS Safety Report 13661532 (Version 1)
Quarter: 2017Q2

REPORT INFORMATION
  Report Type: Spontaneous
  Country: US (occurrence: US)
  Receive Date: 20170616
  Receipt Date: 20170616
  Transmission Date: 20170830
  Serious: Yes (Other)
  Sender: FDA-Public Use
  Company Number: US-US WORLDMEDS, LLC-USW201607-000520

PATIENT
  Sex: Male
  Weight: 63.5 kg

DRUGS (2)
  1. LEVIDOPA/CARBIDOPA [Concomitant]
  2. APOKYN [Suspect]
     Active Substance: APOMORPHINE HYDROCHLORIDE
     Indication: PARKINSON^S DISEASE
     Route: 058

REACTIONS (1)
  - Peripheral swelling [Recovering/Resolving]
